FAERS Safety Report 7073071-4 (Version None)
Quarter: 2010Q4

REPORT INFORMATION
  Report Type: 
  Country: None (occurrence: None)
  Receive Date: 20101029
  Receipt Date: 20100430
  Transmission Date: 20110411
  Serious: No
  Sender: FDA-Public Use
  Company Number: A0855877A

PATIENT
  Age: 47 Year
  Sex: Female

DRUGS (2)
  1. ADVAIR DISKUS 100/50 [Suspect]
     Indication: ASTHMA
     Dosage: 1PUFF TWICE PER DAY
     Route: 055
     Dates: start: 20100405, end: 20100419
  2. PREDNISONE [Concomitant]

REACTIONS (11)
  - ADVERSE EVENT [None]
  - DIARRHOEA [None]
  - DIZZINESS [None]
  - DYSPHONIA [None]
  - ERYTHEMA [None]
  - HYPERHIDROSIS [None]
  - MUSCLE SPASMS [None]
  - NERVOUSNESS [None]
  - OROPHARYNGEAL PAIN [None]
  - PHARYNGEAL OEDEMA [None]
  - VISION BLURRED [None]
